FAERS Safety Report 4991686-1 (Version None)
Quarter: 2006Q2

REPORT INFORMATION
  Report Type: 
  Country: None (occurrence: None)
  Receive Date: 20060504
  Receipt Date: 20060320
  Transmission Date: 20061013
  Serious: Yes (Disabling)
  Sender: FDA-Public Use
  Company Number: GBWYE488103MAR06

PATIENT
  Sex: Female

DRUGS (4)
  1. ENBREL [Suspect]
     Indication: RHEUMATOID ARTHRITIS
     Route: 058
     Dates: start: 20060214
  2. FOLIC ACID [Concomitant]
     Dosage: 10 MG WEEKLY
  3. CODEINE PHOSPHATE/PARACETAMOL [Concomitant]
     Dosage: AS REQUIRED
     Route: 048
  4. METHOTREXATE [Concomitant]

REACTIONS (2)
  - HEADACHE [None]
  - VOMITING [None]
